FAERS Safety Report 21620664 (Version 3)
Quarter: 2024Q1

REPORT INFORMATION
  Report Type: Spontaneous
  Country: US (occurrence: US)
  Receive Date: 20221121
  Receipt Date: 20240322
  Transmission Date: 20240409
  Serious: Yes (Hospitalization)
  Sender: FDA-Public Use
  Company Number: US-GBT-018047

PATIENT
  Age: 9 Year
  Sex: Female

DRUGS (2)
  1. OXBRYTA [Suspect]
     Active Substance: VOXELOTOR
     Indication: Sickle cell disease
     Dosage: 900 MG (3 TABLETS OF 300 MG FOR ORAL SUSPENSION), ONCE DAILY
     Route: 048
     Dates: start: 20220802
  2. OXBRYTA [Suspect]
     Active Substance: VOXELOTOR
     Dosage: 3 PILLS EVERY NIGHT
     Dates: start: 2023

REACTIONS (1)
  - Viral infection [Unknown]

NARRATIVE: CASE EVENT DATE: 20221106
